FAERS Safety Report 17243828 (Version 1)
Quarter: 2020Q1

REPORT INFORMATION
  Report Type: Spontaneous
  Country: US (occurrence: US)
  Receive Date: 20200107
  Receipt Date: 20200107
  Transmission Date: 20200409
  Serious: Yes (Other)
  Sender: FDA-Public Use
  Company Number: US-ROCHE-2461842

PATIENT
  Age: 48 Year
  Sex: Female

DRUGS (3)
  1. DILANTIN [Concomitant]
     Active Substance: PHENYTOIN
  2. KEPPRA [Concomitant]
     Active Substance: LEVETIRACETAM
  3. ACTILYSE [Suspect]
     Active Substance: ALTEPLASE
     Indication: THROMBOTIC THROMBOCYTOPENIC PURPURA
     Route: 013

REACTIONS (4)
  - Off label use [Unknown]
  - Intentional product use issue [Unknown]
  - Haemorrhagic cerebral infarction [Unknown]
  - Cerebral infarction [Recovered/Resolved]
